FAERS Safety Report 6750815-X (Version None)
Quarter: 2010Q2

REPORT INFORMATION
  Report Type: 
  Country: None (occurrence: None)
  Receive Date: 20100602
  Receipt Date: 20100525
  Transmission Date: 20101027
  Serious: Yes (Hospitalization)
  Sender: FDA-Public Use
  Company Number: US-WYE-H14925710

PATIENT
  Sex: Male
  Weight: 48.9 kg

DRUGS (1)
  1. BENEFIX [Suspect]
     Indication: FACTOR IX DEFICIENCY
     Route: 041

REACTIONS (3)
  - BACTERAEMIA [None]
  - CONVULSION [None]
  - PYREXIA [None]
